FAERS Safety Report 11717093 (Version 1)
Quarter: 2015Q4

REPORT INFORMATION
  Report Type: Report from Study
  Country: US (occurrence: US)
  Receive Date: 20151109
  Receipt Date: 20151109
  Transmission Date: 20160304
  Serious: Yes (Hospitalization)
  Sender: FDA-Public Use
  Company Number: US-BAYER-2015-446484

PATIENT
  Age: 57 Year
  Sex: Female

DRUGS (1)
  1. STIVARGA [Suspect]
     Active Substance: REGORAFENIB
     Indication: ANAL CANCER
     Dosage: 80 MG, QD FOR 21 DAYS
     Route: 048
     Dates: start: 20150905, end: 20151021

REACTIONS (3)
  - Dizziness [Recovered/Resolved]
  - Skin exfoliation [Recovering/Resolving]
  - Headache [Not Recovered/Not Resolved]

NARRATIVE: CASE EVENT DATE: 201510
